FAERS Safety Report 4535145-9 (Version None)
Quarter: 2004Q4

REPORT INFORMATION
  Report Type: 
  Country: None (occurrence: None)
  Receive Date: 20041222
  Receipt Date: 20041101
  Transmission Date: 20050328
  Serious: Yes (Other)
  Sender: FDA-Public Use
  Company Number: US-MERCK-0411USA00300

PATIENT
  Age: 73 Year
  Sex: Male

DRUGS (6)
  1. VIOXX [Suspect]
     Indication: ARTHRITIS
     Route: 048
     Dates: start: 20031125, end: 20041112
  2. PLAVIX [Concomitant]
     Route: 065
  3. ALLOPURINOL [Concomitant]
     Route: 065
  4. PRINIVIL [Concomitant]
     Route: 048
  5. VERAPAMIL [Concomitant]
     Route: 065
  6. LIPITOR [Concomitant]
     Route: 065

REACTIONS (2)
  - CHEST DISCOMFORT [None]
  - PERIPHERAL OCCLUSIVE DISEASE [None]
